FAERS Safety Report 17338706 (Version 8)
Quarter: 2021Q1

REPORT INFORMATION
  Report Type: Other
  Country: CA (occurrence: CA)
  Receive Date: 20200129
  Receipt Date: 20210113
  Transmission Date: 20210419
  Serious: No
  Sender: FDA-Public Use
  Company Number: CA-ROCHE-2523378

PATIENT
  Age: 38 Year
  Sex: Female

DRUGS (4)
  1. OCREVUS [Suspect]
     Active Substance: OCRELIZUMAB
     Route: 042
     Dates: start: 20200123
  2. IBUPROFEN. [Concomitant]
     Active Substance: IBUPROFEN
     Dosage: WHEN NEEDED,ONGOING
  3. OCREVUS [Suspect]
     Active Substance: OCRELIZUMAB
     Route: 042
     Dates: start: 20200707
  4. OCREVUS [Suspect]
     Active Substance: OCRELIZUMAB
     Indication: RELAPSING-REMITTING MULTIPLE SCLEROSIS
     Dosage: 300 MG AT DAY 0 AND 14, THEN 600 MG EVERY 6 MONTH
     Route: 042
     Dates: start: 20200109

REACTIONS (5)
  - Infusion related reaction [Recovered/Resolved]
  - Oral herpes [Unknown]
  - Infusion related reaction [Not Recovered/Not Resolved]
  - Oral herpes [Recovering/Resolving]
  - Infusion related reaction [Recovered/Resolved]

NARRATIVE: CASE EVENT DATE: 20200109
